FAERS Safety Report 6674054-6 (Version None)
Quarter: 2010Q2

REPORT INFORMATION
  Report Type: 
  Country: None (occurrence: None)
  Receive Date: 20100409
  Receipt Date: 20100329
  Transmission Date: 20101027
  Serious: Yes (Hospitalization)
  Sender: FDA-Public Use
  Company Number: AR-JNJFOC-20100306918

PATIENT
  Sex: Male
  Weight: 10 kg

DRUGS (1)
  1. IBUPIRAC 2% [Suspect]
     Indication: PYREXIA
     Dosage: AS NEEDED

REACTIONS (5)
  - DRUG HYPERSENSITIVITY [None]
  - DRUG INEFFECTIVE [None]
  - KAWASAKI'S DISEASE [None]
  - PRODUCT QUALITY ISSUE [None]
  - SKIN DISORDER [None]
